FAERS Safety Report 21272785 (Version 1)
Quarter: 2022Q3

REPORT INFORMATION
  Report Type: Spontaneous
  Country: CN (occurrence: CN)
  Receive Date: 20220831
  Receipt Date: 20220831
  Transmission Date: 20221027
  Serious: Yes (Other)
  Sender: FDA-Public Use
  Company Number: None

PATIENT
  Age: 51 Year
  Sex: Female
  Weight: 40 kg

DRUGS (4)
  1. MANNITOL [Suspect]
     Active Substance: MANNITOL
     Indication: Intervertebral disc protrusion
     Dosage: 250 ML, ONCE DAILY
     Route: 041
     Dates: start: 20220801, end: 20220816
  2. CELECOXIB [Suspect]
     Active Substance: CELECOXIB
     Indication: Intervertebral disc protrusion
     Dosage: 0.2 G, TWICE DAILY, MANUFACTURER: EU YI PHARMACEUTICAL CO., LTD. OF SHIYAO GROUP
     Route: 048
     Dates: start: 20220802, end: 20220816
  3. CEFOPERAZONE SODIUM\SULBACTAM SODIUM [Suspect]
     Active Substance: CEFOPERAZONE SODIUM\SULBACTAM SODIUM
     Indication: Infection
     Dosage: 2 G, THREE TIMES DAILY
     Route: 041
     Dates: start: 20220812, end: 20220816
  4. EPERISONE HYDROCHLORIDE [Suspect]
     Active Substance: EPERISONE HYDROCHLORIDE
     Indication: Intervertebral disc protrusion
     Dosage: 50 MG THREE TIMES A DAY, MANUFACTURER: WEISAI (CHINA) PHARMACEUTICAL CO., LTD.
     Route: 048
     Dates: start: 20220802, end: 20220816

REACTIONS (4)
  - Rash erythematous [Recovered/Resolved]
  - Rash [Recovered/Resolved]
  - Rash pruritic [Recovered/Resolved]
  - Pruritus [Recovered/Resolved]

NARRATIVE: CASE EVENT DATE: 20220815
